FAERS Safety Report 5040594-9 (Version None)
Quarter: 2006Q2

REPORT INFORMATION
  Report Type: 
  Country: None (occurrence: None)
  Receive Date: 20060630
  Receipt Date: 20060620
  Transmission Date: 20061013
  Serious: Yes (Hospitalization, Other)
  Sender: FDA-Public Use
  Company Number: GB-JNJFOC-20030803643

PATIENT
  Age: 6 Year
  Sex: Male
  Weight: 23 kg

DRUGS (1)
  1. OVEX [Suspect]
     Indication: ENTEROBIASIS
     Route: 048
     Dates: start: 20030801, end: 20030801

REACTIONS (1)
  - STEVENS-JOHNSON SYNDROME [None]
